FAERS Safety Report 21856391 (Version 1)
Quarter: 2023Q1

REPORT INFORMATION
  Report Type: Report from Study
  Country: US (occurrence: US)
  Receive Date: 20230112
  Receipt Date: 20230112
  Transmission Date: 20230417
  Serious: Yes (Other)
  Sender: FDA-Public Use
  Company Number: US-ABBVIE-4266961

PATIENT
  Sex: Male

DRUGS (1)
  1. IMBRUVICA [Suspect]
     Active Substance: IBRUTINIB
     Indication: Chronic lymphocytic leukaemia
     Route: 048

REACTIONS (6)
  - Subdural haematoma [Unknown]
  - Lymphadenitis [Unknown]
  - Contusion [Unknown]
  - Diarrhoea [Unknown]
  - Arthralgia [Unknown]
  - Heart rate irregular [Unknown]
